FAERS Safety Report 15665174 (Version 1)
Quarter: 2018Q4

REPORT INFORMATION
  Report Type: Spontaneous
  Country: US (occurrence: US)
  Receive Date: 20181128
  Receipt Date: 20181128
  Transmission Date: 20190205
  Serious: Yes (Disabling)
  Sender: FDA-Public Use
  Company Number: None

PATIENT
  Age: 42 Year
  Sex: Female
  Weight: 72.9 kg

DRUGS (5)
  1. ELIQUIS [Concomitant]
     Active Substance: APIXABAN
  2. LUPRON DEPOT [Suspect]
     Active Substance: LEUPROLIDE ACETATE
     Indication: HAEMORRHAGE
     Dosage: ?          QUANTITY:2 INJECTION(S);OTHER FREQUENCY:(2) 11.25MG THREE;OTHER ROUTE:INJECTED IN THE HIPS?
     Dates: start: 20080114, end: 20080401
  3. PERCOCET [Concomitant]
     Active Substance: ACETAMINOPHEN\OXYCODONE HYDROCHLORIDE
  4. ACETAMINOPHEN. [Concomitant]
     Active Substance: ACETAMINOPHEN
  5. LUPRON DEPOT [Suspect]
     Active Substance: LEUPROLIDE ACETATE
     Indication: MUSCLE SPASMS
     Dosage: ?          QUANTITY:2 INJECTION(S);OTHER FREQUENCY:(2) 11.25MG THREE;OTHER ROUTE:INJECTED IN THE HIPS?
     Dates: start: 20080114, end: 20080401

REACTIONS (5)
  - Vision blurred [None]
  - Loss of personal independence in daily activities [None]
  - Bone pain [None]
  - Urinary tract infection [None]
  - Ill-defined disorder [None]

NARRATIVE: CASE EVENT DATE: 20080114
